FAERS Safety Report 4984502-5 (Version None)
Quarter: 2006Q2

REPORT INFORMATION
  Report Type: 
  Country: None (occurrence: None)
  Receive Date: 20060420
  Receipt Date: 20060408
  Transmission Date: 20061013
  Serious: Yes (Death)
  Sender: FDA-Public Use
  Company Number: GXKR2006AU02000

PATIENT
  Age: 27 Year
  Sex: Male

DRUGS (1)
  1. METHADONE (NGX) (METHADONE) [Suspect]

REACTIONS (3)
  - DIABETIC KETOACIDOSIS [None]
  - DRUG TOXICITY [None]
  - NEPHROPATHY [None]
